FAERS Safety Report 13211246 (Version 6)
Quarter: 2017Q2

REPORT INFORMATION
  Report Type: Spontaneous
  Country: US (occurrence: US)
  Receive Date: 20170210
  Receipt Date: 20170505
  Transmission Date: 20170830
  Serious: Yes (Hospitalization)
  Sender: FDA-Public Use
  Company Number: US-PFIZER INC-2017054988

PATIENT
  Age: 67 Year
  Sex: Female

DRUGS (13)
  1. IBRANCE [Suspect]
     Active Substance: PALBOCICLIB
     Indication: THYROID CANCER
     Dosage: 100 MG, CYCLIC (1 CAPSULE DAILY FOR 21 DAYS, THEN 7 DAYS OFF)
     Dates: start: 20170124
  2. PROLIA [Concomitant]
     Active Substance: DENOSUMAB
     Dosage: UNK
  3. SIMVASTATIN. [Concomitant]
     Active Substance: SIMVASTATIN
     Dosage: UNK
  4. ASPIRIN. [Concomitant]
     Active Substance: ASPIRIN
     Dosage: UNK
  5. BIOTIN [Concomitant]
     Active Substance: BIOTIN
     Dosage: UNK
  6. FASLODEX [Concomitant]
     Active Substance: FULVESTRANT
     Dosage: UNK
  7. CALCIUM+D3 [Concomitant]
     Dosage: UNK
  8. IBRANCE [Suspect]
     Active Substance: PALBOCICLIB
     Indication: BREAST CANCER FEMALE
     Dosage: 100 MG, DAILY (QD)
     Route: 048
     Dates: start: 20170124
  9. LOSARTAN POTASSIUM. [Concomitant]
     Active Substance: LOSARTAN POTASSIUM
     Dosage: UNK
  10. SYNTHROID [Concomitant]
     Active Substance: LEVOTHYROXINE SODIUM
     Dosage: UNK
  11. IBRANCE [Suspect]
     Active Substance: PALBOCICLIB
     Indication: BREAST CANCER
     Dosage: 100 MG, CYCLIC (DAY X 21 DAYS)
     Route: 048
     Dates: end: 20170314
  12. METOPROLOL SUCCINATE. [Concomitant]
     Active Substance: METOPROLOL SUCCINATE
     Dosage: UNK
  13. EXEMESTANE. [Concomitant]
     Active Substance: EXEMESTANE
     Dosage: UNK

REACTIONS (4)
  - Alopecia [Unknown]
  - Anaemia [Recovered/Resolved]
  - Haemoglobin decreased [Unknown]
  - Full blood count decreased [Unknown]

NARRATIVE: CASE EVENT DATE: 20170321
